FAERS Safety Report 24792268 (Version 1)
Quarter: 2024Q4

REPORT INFORMATION
  Report Type: Spontaneous
  Country: PK (occurrence: PK)
  Receive Date: 20241231
  Receipt Date: 20241231
  Transmission Date: 20250115
  Serious: Yes (Hospitalization, Other)
  Sender: RANBAXY
  Company Number: PK-SUN PHARMACEUTICAL INDUSTRIES LTD-2024R1-486956

PATIENT
  Age: 39 Year
  Sex: Female

DRUGS (1)
  1. DIVALPROEX SODIUM [Suspect]
     Active Substance: DIVALPROEX SODIUM
     Indication: Ludwig angina
     Dosage: UNK
     Route: 065

REACTIONS (6)
  - Liver function test abnormal [Unknown]
  - Hepatic function abnormal [Unknown]
  - Sturge-Weber syndrome [Unknown]
  - Macroglossia [Unknown]
  - Infection [Unknown]
  - Ammonia increased [Unknown]
